FAERS Safety Report 22162635 (Version 1)
Quarter: 2023Q1

REPORT INFORMATION
  Report Type: Report from Study
  Country: US (occurrence: US)
  Receive Date: 20230331
  Receipt Date: 20230331
  Transmission Date: 20230418
  Serious: Yes (Other)
  Sender: FDA-Public Use
  Company Number: US-UCBSA-2023015876

PATIENT
  Sex: Male

DRUGS (9)
  1. FINTEPLA [Suspect]
     Active Substance: FENFLURAMINE
     Indication: Product used for unknown indication
     Dosage: 5.3 MILLIGRAM, 2X/DAY (BID)
     Route: 048
  2. FINTEPLA [Suspect]
     Active Substance: FENFLURAMINE
     Dosage: 10.12 MILLIGRAM, ONCE DAILY (QD)
     Dates: start: 20200916
  3. FINTEPLA [Suspect]
     Active Substance: FENFLURAMINE
     Dosage: 9.68 MILLIGRAM, ONCE DAILY (QD)
     Dates: start: 20200923
  4. FINTEPLA [Suspect]
     Active Substance: FENFLURAMINE
     Dosage: 7 MILLIGRAM, ONCE DAILY (QD)
     Dates: start: 20200924
  5. FINTEPLA [Suspect]
     Active Substance: FENFLURAMINE
     Dosage: 6 MILLIGRAM, ONCE DAILY (QD)
     Dates: start: 20200907, end: 20210913
  6. FINTEPLA [Suspect]
     Active Substance: FENFLURAMINE
     Dosage: 5.6 MILLIGRAM, ONCE DAILY (QD)
     Dates: start: 20210309
  7. FINTEPLA [Suspect]
     Active Substance: FENFLURAMINE
     Dosage: 10.12 MILLIGRAM, ONCE DAILY (QD)
     Dates: start: 20230217
  8. FINTEPLA [Suspect]
     Active Substance: FENFLURAMINE
     Dosage: 0.6 MILLIGRAM/KILOGRAM, ONCE DAILY (QD)
     Dates: start: 20200831
  9. FINTEPLA [Suspect]
     Active Substance: FENFLURAMINE
     Dosage: 10 MILLIGRAM, ONCE DAILY (QD)
     Dates: start: 20200831

REACTIONS (4)
  - Tricuspid valve incompetence [Unknown]
  - Pulmonary arterial hypertension [Unknown]
  - Echocardiogram abnormal [Not Recovered/Not Resolved]
  - Cardiac valve disease [Unknown]
